FAERS Safety Report 9174045 (Version 1)
Quarter: 2013Q1

REPORT INFORMATION
  Report Type: Spontaneous
  Country: BR (occurrence: BR)
  Receive Date: 20130320
  Receipt Date: 20130320
  Transmission Date: 20140127
  Serious: Yes (Hospitalization, Other)
  Sender: FDA-Public Use
  Company Number: PHHY2013BR025346

PATIENT
  Age: 68 Year
  Sex: Female

DRUGS (5)
  1. AMINOPHYLLINE [Suspect]
     Indication: BRONCHOSPASM
  2. AMINOPHYLLINE [Suspect]
     Indication: CHRONIC OBSTRUCTIVE PULMONARY DISEASE
  3. AMINOPHYLLINE SANDOZ [Suspect]
     Indication: BRONCHOSPASM
     Dosage: 1 TO 2 TABLETS EVERY 6 OR 8 HOURS DURING EPISODE
     Route: 048
  4. AMINOPHYLLINE SANDOZ [Suspect]
     Indication: CHRONIC OBSTRUCTIVE PULMONARY DISEASE
  5. OXYGEN [Suspect]
     Indication: DYSPNOEA
     Dosage: 2 MM BY HOUR, DURING 10 HOURS

REACTIONS (5)
  - Bronchospasm [Recovering/Resolving]
  - Dyspnoea [Recovering/Resolving]
  - Lung disorder [Not Recovered/Not Resolved]
  - Influenza [Recovered/Resolved]
  - Hypersensitivity [Recovered/Resolved]
